FAERS Safety Report 4594428-7 (Version None)
Quarter: 2005Q1

REPORT INFORMATION
  Report Type: 
  Country: None (occurrence: None)
  Receive Date: 20050301
  Receipt Date: 20040129
  Transmission Date: 20050727
  Serious: No
  Sender: FDA-Public Use
  Company Number: US-GLAXOSMITHKLINE-A0495994A

PATIENT
  Age: 57 Year
  Sex: Male

DRUGS (3)
  1. VALTREX [Suspect]
     Indication: ILL-DEFINED DISORDER
     Route: 048
     Dates: start: 20040122
  2. WELLBUTRIN [Concomitant]
  3. XANAX [Concomitant]

REACTIONS (2)
  - HERPES VIRUS INFECTION [None]
  - PAIN [None]
